FAERS Safety Report 13305266 (Version 2)
Quarter: 2017Q2

REPORT INFORMATION
  Report Type: Spontaneous
  Country: US (occurrence: US)
  Receive Date: 20170308
  Receipt Date: 20170504
  Transmission Date: 20170830
  Serious: Yes (Other)
  Sender: FDA-Public Use
  Company Number: US-TEVA-746788ACC

PATIENT
  Sex: Female
  Weight: 54.93 kg

DRUGS (1)
  1. PARAGARD T 380A [Suspect]
     Active Substance: COPPER
     Indication: CONTRACEPTION
     Dosage: A MONTH AGO
     Route: 065
     Dates: start: 20170117, end: 20170228

REACTIONS (2)
  - Muscle spasms [Recovering/Resolving]
  - Device dislocation [Recovered/Resolved]
